FAERS Safety Report 9858171 (Version 3)
Quarter: 2014Q3

REPORT INFORMATION
  Report Type: Spontaneous
  Country: US (occurrence: US)
  Receive Date: 20140131
  Receipt Date: 20140804
  Transmission Date: 20150326
  Serious: Yes (Other)
  Sender: FDA-Public Use
  Company Number: US-BAYER-2014-014348

PATIENT
  Age: 18 Year
  Sex: Female
  Weight: 57.6 kg

DRUGS (2)
  1. MIRENA [Suspect]
     Active Substance: LEVONORGESTREL
     Indication: CONTRACEPTION
     Dosage: 20 MCG/24HR, CONT
     Route: 015
     Dates: start: 20080530, end: 20110511
  2. METFORMIN [Concomitant]
     Active Substance: METFORMIN HYDROCHLORIDE
     Indication: TYPE 2 DIABETES MELLITUS
     Dosage: UNK
     Dates: start: 2009

REACTIONS (15)
  - Device issue [None]
  - Medical device discomfort [None]
  - Device dislocation [None]
  - Depression [None]
  - Anxiety [None]
  - Uterine scar [None]
  - Genital haemorrhage [None]
  - Pain [None]
  - Abdominal pain lower [None]
  - Internal injury [None]
  - Uterine perforation [None]
  - Abdominal pain [None]
  - Injury [None]
  - Emotional distress [None]
  - Fear [None]
